FAERS Safety Report 4690203-3 (Version None)
Quarter: 2005Q2

REPORT INFORMATION
  Report Type: 
  Country: None (occurrence: None)
  Receive Date: 20050613
  Receipt Date: 20050603
  Transmission Date: 20051028
  Serious: Yes (Hospitalization)
  Sender: FDA-Public Use
  Company Number: 163-20785-05040057

PATIENT
  Age: 70 Year
  Sex: Male

DRUGS (19)
  1. THALOMID [Suspect]
     Indication: MULTIPLE MYELOMA
     Dosage: SEE IMAGE
     Route: 048
     Dates: start: 20041222, end: 20041225
  2. THALOMID [Suspect]
     Indication: MULTIPLE MYELOMA
     Dosage: SEE IMAGE
     Route: 048
     Dates: start: 20041112
  3. VELCADE [Suspect]
     Indication: MULTIPLE MYELOMA
     Dates: start: 20041101, end: 20041101
  4. VELCADE [Suspect]
     Indication: MULTIPLE MYELOMA
     Dates: start: 20041201, end: 20041201
  5. DEXAMETHASONE [Suspect]
     Indication: MULTIPLE MYELOMA
     Dates: start: 20041101, end: 20041101
  6. DEXAMETHASONE [Suspect]
     Indication: MULTIPLE MYELOMA
     Dates: start: 20041201, end: 20041201
  7. CISPLATIN [Suspect]
     Indication: MULTIPLE MYELOMA
     Dates: start: 20041101, end: 20041101
  8. CISPLATIN [Suspect]
     Indication: MULTIPLE MYELOMA
     Dates: start: 20041201, end: 20041201
  9. ADRIAMYCIN PFS [Suspect]
     Indication: MULTIPLE MYELOMA
     Dates: start: 20041101, end: 20041101
  10. CYCLOPHOSPHAMIDE [Suspect]
     Indication: MULTIPLE MYELOMA
     Dates: start: 20041101, end: 20041101
  11. CYCLOPHOSPHAMIDE [Suspect]
     Indication: MULTIPLE MYELOMA
     Dates: start: 20041201, end: 20041201
  12. ETOPOSIDE [Suspect]
     Indication: MULTIPLE MYELOMA
     Dates: start: 20041101, end: 20041101
  13. ETOPOSIDE [Suspect]
     Indication: MULTIPLE MYELOMA
     Dates: start: 20041201, end: 20041201
  14. ACYCLOVIR [Concomitant]
  15. LEVAQUIN (LEVOFLOXACIN0 [Concomitant]
  16. PEPCID 9FAMOTIDINE0 [Concomitant]
  17. FOLIC ACID [Concomitant]
  18. MULTIVITAMIN [Concomitant]
  19. OXYCODONE (OXYCODONE) [Concomitant]

REACTIONS (6)
  - ASTHENIA [None]
  - COLITIS [None]
  - DIARRHOEA [None]
  - DIVERTICULITIS [None]
  - MUCOSAL INFLAMMATION [None]
  - PANCYTOPENIA [None]
